FAERS Safety Report 7097306-7 (Version None)
Quarter: 2010Q4

REPORT INFORMATION
  Report Type: 
  Country: None (occurrence: None)
  Receive Date: 20101111
  Receipt Date: 20100127
  Transmission Date: 20110411
  Serious: No
  Sender: FDA-Public Use
  Company Number: US-KINGPHARMUSA00001-K201000110

PATIENT
  Age: 60 Year
  Sex: Female
  Weight: 68.027 kg

DRUGS (4)
  1. SKELAXIN [Suspect]
     Indication: MUSCULOSKELETAL PAIN
     Dosage: 800 MG, SINGLE
     Route: 048
     Dates: start: 20090101, end: 20090101
  2. SKELAXIN [Suspect]
     Indication: BACK PAIN
  3. SELDANE [Concomitant]
     Dosage: UNK
     Dates: start: 20090101, end: 20090101
  4. CORTISONE [Concomitant]
     Dosage: UNK SV, UNK
     Dates: start: 20090101, end: 20090101

REACTIONS (1)
  - FEELING JITTERY [None]
